FAERS Safety Report 4714794-9 (Version None)
Quarter: 2005Q3

REPORT INFORMATION
  Report Type: 
  Country: None (occurrence: None)
  Receive Date: 20050714
  Receipt Date: 20050714
  Transmission Date: 20060218
  Serious: Yes (Death, Hospitalization)
  Sender: FDA-Public Use
  Company Number: None

PATIENT
  Age: 74 Year
  Sex: Female
  Weight: 64.4108 kg

DRUGS (9)
  1. REMICADE [Suspect]
     Indication: PSORIASIS
     Dosage: 240 MG (5 MG 1 KG)
     Dates: start: 20040724, end: 20040810
  2. REMICADE [Suspect]
     Indication: RHEUMATOID ARTHRITIS
     Dosage: 240 MG (5 MG 1 KG)
     Dates: start: 20040724, end: 20040810
  3. FLOUETINE [Concomitant]
  4. RALOXIFENE HCL [Concomitant]
  5. ATENOLOL [Concomitant]
  6. LOVASTATIN [Concomitant]
  7. FOLIC ACID [Concomitant]
  8. DIFLUCAN [Concomitant]
  9. DELTASONE [Concomitant]

REACTIONS (2)
  - FIBROSIS [None]
  - PNEUMONIA [None]
